FAERS Safety Report 10010323 (Version 4)
Quarter: 2014Q2

REPORT INFORMATION
  Report Type: Spontaneous
  Country: CA (occurrence: CA)
  Receive Date: 20140314
  Receipt Date: 20140508
  Transmission Date: 20141212
  Serious: Yes (Other)
  Sender: FDA-Public Use
  Company Number: CA-AMGEN-CANSP2014016574

PATIENT
  Age: 63 Year
  Sex: Female
  Weight: 77.1 kg

DRUGS (1)
  1. PROLIA [Suspect]
     Indication: OSTEOPOROSIS POSTMENOPAUSAL
     Dosage: 60 MG/ML, Q6MO
     Route: 058
     Dates: start: 20131002

REACTIONS (7)
  - Kidney infection [Recovered/Resolved]
  - Intervertebral disc disorder [Unknown]
  - Urinary tract infection [Recovered/Resolved]
  - Urge incontinence [Recovered/Resolved]
  - Cystitis [Recovered/Resolved]
  - Influenza [Not Recovered/Not Resolved]
  - Arthralgia [Unknown]
